FAERS Safety Report 6906836-7 (Version None)
Quarter: 2010Q3

REPORT INFORMATION
  Report Type: 
  Country: None (occurrence: None)
  Receive Date: 20100804
  Receipt Date: 20100726
  Transmission Date: 20110219
  Serious: Yes (Hospitalization)
  Sender: FDA-Public Use
  Company Number: US-ELI_LILLY_AND_COMPANY-US201007006146

PATIENT
  Sex: Female
  Weight: 108.84 kg

DRUGS (3)
  1. BYETTA [Suspect]
     Indication: TYPE 2 DIABETES MELLITUS
     Dosage: 5 UG, 2/D
     Route: 058
     Dates: start: 20100601, end: 20100601
  2. BYETTA [Suspect]
     Dosage: 10 UG, 2/D
     Route: 058
     Dates: start: 20100724, end: 20100724
  3. INSULIN [Concomitant]

REACTIONS (13)
  - CYSTITIS [None]
  - DECREASED APPETITE [None]
  - DRUG DOSE OMISSION [None]
  - DYSGEUSIA [None]
  - FEELING ABNORMAL [None]
  - HYPOVENTILATION [None]
  - MALAISE [None]
  - OFF LABEL USE [None]
  - PNEUMONIA [None]
  - PRODUCTIVE COUGH [None]
  - PRURITUS [None]
  - VOMITING [None]
  - WEIGHT DECREASED [None]
